FAERS Safety Report 5166863-X (Version None)
Quarter: 2006Q4

REPORT INFORMATION
  Report Type: 
  Country: None (occurrence: None)
  Receive Date: 20061207
  Receipt Date: 20061128
  Transmission Date: 20070319
  Serious: Yes (Hospitalization)
  Sender: FDA-Public Use
  Company Number: DE-ELI_LILLY_AND_COMPANY-DE200612000282

PATIENT
  Age: 53 Year
  Sex: Female

DRUGS (3)
  1. HUMALOG [Suspect]
     Indication: DIABETES MELLITUS INSULIN-DEPENDENT
     Route: 058
     Dates: start: 19960101, end: 20060904
  2. ENALAPRIL W/HYDROCHLOROTHIAZIDE [Concomitant]
     Route: 048
     Dates: start: 20020101, end: 20060801
  3. METOPROLOL SUCCINATE [Concomitant]
     Dosage: 100 MG, UNK
     Route: 048
     Dates: start: 20060801

REACTIONS (1)
  - URTICARIA [None]
